FAERS Safety Report 19698783 (Version 20)
Quarter: 2025Q4

REPORT INFORMATION
  Report Type: Spontaneous
  Country: CA (occurrence: CA)
  Receive Date: 20210813
  Receipt Date: 20251229
  Transmission Date: 20260117
  Serious: Yes (Death, Life-Threatening, Hospitalization, Disabling, Congenital Anomaly, Other)
  Sender: Haleon PLC
  Company Number: CA-002147023-NVSC2021CA113633

PATIENT
  Age: 43 Year
  Sex: Female
  Weight: 96 kg

DRUGS (261)
  1. VOLTAREN [Suspect]
     Active Substance: DICLOFENAC SODIUM
     Indication: Rheumatoid arthritis
     Dosage: UNK
  2. VOLTAREN [Suspect]
     Active Substance: DICLOFENAC SODIUM
     Indication: Product used for unknown indication
     Dosage: UNK
  3. VOLTAREN [Suspect]
     Active Substance: DICLOFENAC SODIUM
     Dosage: UNK
  4. VOLTAREN [Suspect]
     Active Substance: DICLOFENAC SODIUM
     Dosage: UNK
  5. VOLTAREN [Suspect]
     Active Substance: DICLOFENAC SODIUM
     Dosage: UNK OPHTHALMIC
  6. LEFLUNOMIDE [Suspect]
     Active Substance: LEFLUNOMIDE
     Indication: Rheumatoid arthritis
     Dosage: 1 DF, QD
  7. LEFLUNOMIDE [Suspect]
     Active Substance: LEFLUNOMIDE
     Dosage: UNK
  8. LEFLUNOMIDE [Suspect]
     Active Substance: LEFLUNOMIDE
     Dosage: UNK
  9. LEFLUNOMIDE [Suspect]
     Active Substance: LEFLUNOMIDE
     Dosage: UNK
  10. LEFLUNOMIDE [Suspect]
     Active Substance: LEFLUNOMIDE
  11. LEFLUNOMIDE [Suspect]
     Active Substance: LEFLUNOMIDE
  12. LEFLUNOMIDE [Suspect]
     Active Substance: LEFLUNOMIDE
     Dosage: UNK
  13. LEFLUNOMIDE [Suspect]
     Active Substance: LEFLUNOMIDE
     Dosage: UNK
  14. CETIRIZINE HYDROCHLORIDE [Suspect]
     Active Substance: CETIRIZINE HYDROCHLORIDE
     Indication: Rheumatoid arthritis
     Dosage: 25 MG
  15. CETIRIZINE HYDROCHLORIDE [Suspect]
     Active Substance: CETIRIZINE HYDROCHLORIDE
     Dosage: 25 MG
  16. CETIRIZINE HYDROCHLORIDE [Suspect]
     Active Substance: CETIRIZINE HYDROCHLORIDE
     Dosage: 25 MG
  17. CETIRIZINE HYDROCHLORIDE [Suspect]
     Active Substance: CETIRIZINE HYDROCHLORIDE
     Dosage: UNK
  18. CETIRIZINE HYDROCHLORIDE [Suspect]
     Active Substance: CETIRIZINE HYDROCHLORIDE
     Dosage: 10 MG, QD (1 EVERY 1 DAY)
  19. CETIRIZINE HYDROCHLORIDE [Suspect]
     Active Substance: CETIRIZINE HYDROCHLORIDE
     Dosage: 25 MG
  20. CETIRIZINE HYDROCHLORIDE [Suspect]
     Active Substance: CETIRIZINE HYDROCHLORIDE
  21. CETIRIZINE HYDROCHLORIDE [Suspect]
     Active Substance: CETIRIZINE HYDROCHLORIDE
  22. DICLOFENAC SODIUM [Suspect]
     Active Substance: DICLOFENAC SODIUM
     Indication: Product used for unknown indication
     Dosage: 50 MG
  23. DICLOFENAC SODIUM [Suspect]
     Active Substance: DICLOFENAC SODIUM
     Dosage: UNK, OPHTHALMIC
  24. DICLOFENAC SODIUM [Suspect]
     Active Substance: DICLOFENAC SODIUM
     Dosage: UNK
  25. DICLOFENAC SODIUM [Suspect]
     Active Substance: DICLOFENAC SODIUM
     Dosage: SUBCUTANEOUS
  26. DICLOFENAC SODIUM [Suspect]
     Active Substance: DICLOFENAC SODIUM
     Dosage: 50 MG
  27. FOLIC ACID [Suspect]
     Active Substance: FOLIC ACID
     Indication: Rheumatoid arthritis
     Dosage: UNK
  28. FOLIC ACID [Suspect]
     Active Substance: FOLIC ACID
  29. FOLIC ACID [Suspect]
     Active Substance: FOLIC ACID
  30. FOLIC ACID [Suspect]
     Active Substance: FOLIC ACID
  31. FOLIC ACID [Suspect]
     Active Substance: FOLIC ACID
  32. FOLIC ACID [Suspect]
     Active Substance: FOLIC ACID
  33. FOLIC ACID [Suspect]
     Active Substance: FOLIC ACID
  34. FOLIC ACID [Suspect]
     Active Substance: FOLIC ACID
  35. FOLIC ACID [Suspect]
     Active Substance: FOLIC ACID
  36. FOLIC ACID [Suspect]
     Active Substance: FOLIC ACID
  37. FOLIC ACID [Suspect]
     Active Substance: FOLIC ACID
  38. FOLIC ACID [Suspect]
     Active Substance: FOLIC ACID
  39. FOLIC ACID [Suspect]
     Active Substance: FOLIC ACID
  40. ADALIMUMAB [Suspect]
     Active Substance: ADALIMUMAB
     Indication: Rheumatoid arthritis
     Dosage: UNK
  41. ADALIMUMAB [Suspect]
     Active Substance: ADALIMUMAB
     Dosage: UNK
  42. ADALIMUMAB [Suspect]
     Active Substance: ADALIMUMAB
     Dosage: DOSAGE: 40 MG UNK
  43. ADALIMUMAB [Suspect]
     Active Substance: ADALIMUMAB
     Dosage: DOSAGE: 40 MG UNK
  44. MYCOPHENOLATE MOFETIL [Suspect]
     Active Substance: MYCOPHENOLATE MOFETIL
     Indication: Product used for unknown indication
     Dosage: UNK
  45. METHOTREXATE [Suspect]
     Active Substance: METHOTREXATE
     Indication: Rheumatoid arthritis
     Dosage: 20 MG
  46. METHOTREXATE [Suspect]
     Active Substance: METHOTREXATE
     Indication: Psoriatic arthropathy
     Dosage: 20 MG, QW
  47. METHOTREXATE [Suspect]
     Active Substance: METHOTREXATE
     Dosage: UNK
  48. METHOTREXATE [Suspect]
     Active Substance: METHOTREXATE
     Dosage: 2 G, QD
  49. METHOTREXATE [Suspect]
     Active Substance: METHOTREXATE
     Dosage: 20 MG, QD
  50. METHOTREXATE [Suspect]
     Active Substance: METHOTREXATE
     Dosage: 3.571 MG
  51. METHOTREXATE [Suspect]
     Active Substance: METHOTREXATE
     Dosage: UNK, QD
  52. METHOTREXATE [Suspect]
     Active Substance: METHOTREXATE
     Dosage: 25 MG, QD
  53. METHOTREXATE [Suspect]
     Active Substance: METHOTREXATE
     Dosage: UNK
  54. METHOTREXATE [Suspect]
     Active Substance: METHOTREXATE
     Dosage: 25 MG
  55. METHOTREXATE [Suspect]
     Active Substance: METHOTREXATE
     Dosage: 1 G
  56. METHOTREXATE [Suspect]
     Active Substance: METHOTREXATE
     Dosage: 25 MG
  57. METHOTREXATE [Suspect]
     Active Substance: METHOTREXATE
     Dosage: 2 G, QD
  58. METHOTREXATE [Suspect]
     Active Substance: METHOTREXATE
     Dosage: 20 MG, QD
  59. METHOTREXATE [Suspect]
     Active Substance: METHOTREXATE
     Dosage: UNK
  60. METHOTREXATE [Suspect]
     Active Substance: METHOTREXATE
     Dosage: 15 MG
  61. METHOTREXATE [Suspect]
     Active Substance: METHOTREXATE
     Dosage: 20 MG, QD
  62. METHOTREXATE [Suspect]
     Active Substance: METHOTREXATE
     Dosage: 25 MG, QW
  63. METHOTREXATE [Suspect]
     Active Substance: METHOTREXATE
     Dosage: 25 MG, QW
  64. METHOTREXATE [Suspect]
     Active Substance: METHOTREXATE
     Dosage: 2 G, QD
  65. METHOTREXATE [Suspect]
     Active Substance: METHOTREXATE
     Dosage: UNK
  66. METHOTREXATE [Suspect]
     Active Substance: METHOTREXATE
     Dosage: 25 MG, QW
  67. METHOTREXATE [Suspect]
     Active Substance: METHOTREXATE
     Dosage: 25 MG, QW
  68. METHOTREXATE [Suspect]
     Active Substance: METHOTREXATE
     Dosage: 1 DOSAGE FORM
  69. METHOTREXATE [Suspect]
     Active Substance: METHOTREXATE
     Dosage: 2 G
  70. METHOTREXATE [Suspect]
     Active Substance: METHOTREXATE
     Dosage: UNK
  71. METHOTREXATE [Suspect]
     Active Substance: METHOTREXATE
     Dosage: 20 MG
  72. METHOTREXATE [Suspect]
     Active Substance: METHOTREXATE
     Dosage: 25 MG, QD
  73. METHOTREXATE [Suspect]
     Active Substance: METHOTREXATE
     Dosage: 20 MG
  74. METHOTREXATE [Suspect]
     Active Substance: METHOTREXATE
     Dosage: 25 MG
  75. METHOTREXATE [Suspect]
     Active Substance: METHOTREXATE
     Indication: Rheumatoid arthritis
     Dosage: UNK
  76. METHOTREXATE [Suspect]
     Active Substance: METHOTREXATE
     Dosage: UNK
  77. METHOTREXATE [Suspect]
     Active Substance: METHOTREXATE
     Dosage: UNK
  78. METHOTREXATE [Suspect]
     Active Substance: METHOTREXATE
     Dosage: UNK
  79. OXYCODONE HYDROCHLORIDE [Suspect]
     Active Substance: OXYCODONE HYDROCHLORIDE
     Indication: Product used for unknown indication
     Dosage: UNK
  80. ERELZI [Suspect]
     Active Substance: ETANERCEPT-SZZS
     Indication: Rheumatoid arthritis
     Dosage: UNK
  81. ERELZI [Suspect]
     Active Substance: ETANERCEPT-SZZS
     Dosage: UNK
  82. ERELZI [Suspect]
     Active Substance: ETANERCEPT-SZZS
     Dosage: UNK
  83. ERELZI [Suspect]
     Active Substance: ETANERCEPT-SZZS
     Dosage: UNK
  84. ERELZI [Suspect]
     Active Substance: ETANERCEPT-SZZS
     Dosage: UNK
  85. ERELZI [Suspect]
     Active Substance: ETANERCEPT-SZZS
     Dosage: 50 MG
  86. ERELZI [Suspect]
     Active Substance: ETANERCEPT-SZZS
     Dosage: UNK
  87. ERELZI [Suspect]
     Active Substance: ETANERCEPT-SZZS
     Dosage: UNK
  88. ERELZI [Suspect]
     Active Substance: ETANERCEPT-SZZS
     Dosage: UNK
  89. RITUXIMAB [Suspect]
     Active Substance: RITUXIMAB
     Indication: Rheumatoid arthritis
     Dosage: UNK
  90. RITUXIMAB [Suspect]
     Active Substance: RITUXIMAB
     Dosage: UNK, INTRAVENOUS (NOT OTHERWISE SPECIFIED)
  91. RITUXIMAB [Suspect]
     Active Substance: RITUXIMAB
     Dosage: UNK, INTRAVENOUS DRIP
  92. RITUXIMAB [Suspect]
     Active Substance: RITUXIMAB
     Dosage: UNK, INTRAVESICAL
  93. RITUXIMAB [Suspect]
     Active Substance: RITUXIMAB
     Dosage: UNK, INTRAVESICAL
  94. RITUXIMAB [Suspect]
     Active Substance: RITUXIMAB
     Dosage: UNK, INTRAVENOUS BOLUS
  95. RITUXIMAB [Suspect]
     Active Substance: RITUXIMAB
     Dosage: UNK
  96. RITUXIMAB [Suspect]
     Active Substance: RITUXIMAB
     Dosage: SUBCUTANEOUS
  97. OXYCODONE [Suspect]
     Active Substance: OXYCODONE
     Indication: Product used for unknown indication
     Dosage: UNK
  98. COSENTYX [Suspect]
     Active Substance: SECUKINUMAB
     Indication: Psoriatic arthropathy
     Dosage: 40 MG, QD
  99. COSENTYX [Suspect]
     Active Substance: SECUKINUMAB
     Dosage: 400 MG
  100. COSENTYX [Suspect]
     Active Substance: SECUKINUMAB
     Dosage: UNK
  101. COSENTYX [Suspect]
     Active Substance: SECUKINUMAB
     Dosage: 40 MG, QD
  102. COSENTYX [Suspect]
     Active Substance: SECUKINUMAB
     Dosage: ROUTE: INJECTION NOS
  103. COSENTYX [Suspect]
     Active Substance: SECUKINUMAB
     Dosage: 400 MG
  104. COSENTYX [Suspect]
     Active Substance: SECUKINUMAB
  105. HYRIMOZ [Suspect]
     Active Substance: ADALIMUMAB-ADAZ
     Indication: Rheumatoid arthritis
     Dosage: UNK
  106. CORTISONE ACETATE [Suspect]
     Active Substance: CORTISONE ACETATE
     Indication: Rheumatoid arthritis
  107. CORTISONE ACETATE [Suspect]
     Active Substance: CORTISONE ACETATE
     Dosage: TOPICAL
  108. CORTISONE ACETATE [Suspect]
     Active Substance: CORTISONE ACETATE
  109. CORTISONE ACETATE [Suspect]
     Active Substance: CORTISONE ACETATE
  110. DESOXIMETASONE [Suspect]
     Active Substance: DESOXIMETASONE
     Indication: Rheumatoid arthritis
     Dosage: ORAL
  111. DESOXIMETASONE [Suspect]
     Active Substance: DESOXIMETASONE
     Dosage: ORAL
  112. DESOXIMETASONE [Suspect]
     Active Substance: DESOXIMETASONE
  113. DESOXIMETASONE [Suspect]
     Active Substance: DESOXIMETASONE
  114. DESOXIMETASONE [Suspect]
     Active Substance: DESOXIMETASONE
     Dosage: ORAL
  115. DESOXIMETASONE [Suspect]
     Active Substance: DESOXIMETASONE
     Dosage: INTRAVENOUS (NOT OTHERWISE SPECIFIED)
  116. DESOXIMETASONE [Suspect]
     Active Substance: DESOXIMETASONE
     Dosage: ORAL
  117. DESOXIMETASONE [Suspect]
     Active Substance: DESOXIMETASONE
     Dosage: ORAL
  118. DESOXIMETASONE [Suspect]
     Active Substance: DESOXIMETASONE
  119. DESOXIMETASONE [Suspect]
     Active Substance: DESOXIMETASONE
     Dosage: CUTANEOUS
  120. DESOXIMETASONE [Suspect]
     Active Substance: DESOXIMETASONE
     Dosage: TOPICAL
  121. DESOXIMETASONE [Suspect]
     Active Substance: DESOXIMETASONE
  122. DESOXIMETASONE [Suspect]
     Active Substance: DESOXIMETASONE
     Dosage: CUTANEOUS
  123. DESOXIMETASONE [Suspect]
     Active Substance: DESOXIMETASONE
     Dosage: SUBCUTANEOUS
  124. DESOXIMETASONE [Suspect]
     Active Substance: DESOXIMETASONE
     Dosage: ORAL
  125. ACETAMINOPHEN AND CODEINE [Suspect]
     Active Substance: ACETAMINOPHEN\CODEINE PHOSPHATE
     Indication: Product used for unknown indication
  126. PREDNISONE [Suspect]
     Active Substance: PREDNISONE
     Indication: Rheumatoid arthritis
  127. PREDNISONE [Suspect]
     Active Substance: PREDNISONE
  128. PREDNISONE [Suspect]
     Active Substance: PREDNISONE
  129. APREMILAST [Suspect]
     Active Substance: APREMILAST
     Indication: Product used for unknown indication
     Dosage: 2 EVERY 1 DAY
  130. ATOMOXETINE HYDROCHLORIDE [Suspect]
     Active Substance: ATOMOXETINE HYDROCHLORIDE
     Indication: Migraine
  131. ATOMOXETINE HYDROCHLORIDE [Suspect]
     Active Substance: ATOMOXETINE HYDROCHLORIDE
  132. BERINERT [Suspect]
     Active Substance: HUMAN C1-ESTERASE INHIBITOR
     Indication: Product used for unknown indication
  133. BUTRANS [Suspect]
     Active Substance: BUPRENORPHINE
     Indication: Product used for unknown indication
  134. CALCIUM ASCORBATE [Suspect]
     Active Substance: CALCIUM ASCORBATE
     Indication: Product used for unknown indication
  135. CALCIUM GLUBIONATE [Suspect]
     Active Substance: CALCIUM GLUBIONATE
     Indication: Product used for unknown indication
  136. CELECOXIB [Suspect]
     Active Substance: CELECOXIB
     Indication: Product used for unknown indication
  137. CELECOXIB [Suspect]
     Active Substance: CELECOXIB
  138. CHLORHEXIDINE GLUCONATE [Suspect]
     Active Substance: CHLORHEXIDINE GLUCONATE
     Indication: Rheumatoid arthritis
  139. CHOLECALCIFEROL [Suspect]
     Active Substance: CHOLECALCIFEROL
     Indication: Product used for unknown indication
  140. CIMZIA [Suspect]
     Active Substance: CERTOLIZUMAB PEGOL
     Indication: Rheumatoid arthritis
  141. CIMZIA [Suspect]
     Active Substance: CERTOLIZUMAB PEGOL
     Indication: Psoriasis
  142. CYCLOBENZAPRINE [Suspect]
     Active Substance: CYCLOBENZAPRINE
     Indication: Product used for unknown indication
  143. DICLOFENAC POTASSIUM [Suspect]
     Active Substance: DICLOFENAC POTASSIUM
     Indication: Product used for unknown indication
  144. ENBREL [Suspect]
     Active Substance: ETANERCEPT
     Indication: Rheumatoid arthritis
  145. HYDROMORPHONE [Suspect]
     Active Substance: HYDROMORPHONE
     Indication: Product used for unknown indication
  146. INFLIXIMAB [Suspect]
     Active Substance: INFLIXIMAB
     Indication: Rheumatoid arthritis
  147. METHYLPREDNISOLONE SODIUM SUCCINATE [Suspect]
     Active Substance: METHYLPREDNISOLONE SODIUM SUCCINATE
     Indication: Rheumatoid arthritis
  148. PANTOPRAZOLE [Suspect]
     Active Substance: PANTOPRAZOLE
     Indication: Rheumatoid arthritis
  149. TOFACITINIB CITRATE [Suspect]
     Active Substance: TOFACITINIB CITRATE
     Indication: Rheumatoid arthritis
  150. TRAMADOL HYDROCHLORIDE [Suspect]
     Active Substance: TRAMADOL HYDROCHLORIDE
     Indication: Product used for unknown indication
  151. XELJANZ [Suspect]
     Active Substance: TOFACITINIB CITRATE
     Indication: Rheumatoid arthritis
  152. MYCOPHENOLATE MOFETIL [Suspect]
     Active Substance: MYCOPHENOLATE MOFETIL
     Indication: Product used for unknown indication
     Dosage: UNK
  153. LEFLUNOMIDE [Suspect]
     Active Substance: LEFLUNOMIDE
     Indication: Rheumatoid arthritis
     Dosage: 1 DOSAGE FORM, QD
  154. LEFLUNOMIDE [Suspect]
     Active Substance: LEFLUNOMIDE
     Dosage: 1 DOSAGE FORM, QD
  155. LEFLUNOMIDE [Suspect]
     Active Substance: LEFLUNOMIDE
  156. LEFLUNOMIDE [Suspect]
     Active Substance: LEFLUNOMIDE
  157. LEFLUNOMIDE [Suspect]
     Active Substance: LEFLUNOMIDE
  158. LEFLUNOMIDE [Suspect]
     Active Substance: LEFLUNOMIDE
  159. ACETAMINOPHEN [Suspect]
     Active Substance: ACETAMINOPHEN
     Indication: Product used for unknown indication
     Dosage: 20 MG
  160. ACETAMINOPHEN [Suspect]
     Active Substance: ACETAMINOPHEN
     Indication: Rheumatoid arthritis
     Dosage: 10 MG
  161. VOLTAREN [Suspect]
     Active Substance: DICLOFENAC SODIUM
     Indication: Product used for unknown indication
     Dosage: UNK, UNKNOWN
  162. VOLTAREN [Suspect]
     Active Substance: DICLOFENAC SODIUM
     Dosage: UNK, UNKNOWN
  163. ALENDRONIC ACID [Suspect]
     Active Substance: ALENDRONIC ACID
     Indication: Rheumatoid arthritis
     Dosage: UNK
  164. ALENDRONATE SODIUM [Suspect]
     Active Substance: ALENDRONATE SODIUM
     Indication: Rheumatoid arthritis
  165. ALENDRONATE SODIUM [Suspect]
     Active Substance: ALENDRONATE SODIUM
  166. ALENDRONATE SODIUM [Suspect]
     Active Substance: ALENDRONATE SODIUM
  167. ALENDRONATE SODIUM [Suspect]
     Active Substance: ALENDRONATE SODIUM
  168. ALENDRONATE SODIUM\CHOLECALCIFEROL [Suspect]
     Active Substance: ALENDRONATE SODIUM\CHOLECALCIFEROL
     Indication: Rheumatoid arthritis
  169. CORTISONE [Suspect]
     Active Substance: CORTISONE
     Indication: Rheumatoid arthritis
  170. CORTISONE [Suspect]
     Active Substance: CORTISONE
     Dosage: CUTANEOUS
  171. CORTISONE [Suspect]
     Active Substance: CORTISONE
     Dosage: TOPICAL
  172. CORTISONE [Suspect]
     Active Substance: CORTISONE
     Dosage: TOPICAL
  173. CORTISONE [Suspect]
     Active Substance: CORTISONE
     Dosage: SUBCUTANEOUS
  174. CORTISONE [Suspect]
     Active Substance: CORTISONE
  175. HYDROXYCHLOROQUINE SULFATE [Suspect]
     Active Substance: HYDROXYCHLOROQUINE SULFATE
     Indication: Systemic lupus erythematosus
  176. HYDROXYCHLOROQUINE SULFATE [Suspect]
     Active Substance: HYDROXYCHLOROQUINE SULFATE
     Indication: Rheumatoid arthritis
  177. HYDROXYCHLOROQUINE SULFATE [Suspect]
     Active Substance: HYDROXYCHLOROQUINE SULFATE
  178. HYDROXYCHLOROQUINE SULFATE [Suspect]
     Active Substance: HYDROXYCHLOROQUINE SULFATE
  179. HYDROXYCHLOROQUINE SULFATE [Suspect]
     Active Substance: HYDROXYCHLOROQUINE SULFATE
  180. HYDROXYCHLOROQUINE SULFATE [Suspect]
     Active Substance: HYDROXYCHLOROQUINE SULFATE
  181. HYDROXYCHLOROQUINE SULFATE [Suspect]
     Active Substance: HYDROXYCHLOROQUINE SULFATE
  182. HYDROXYCHLOROQUINE SULFATE [Suspect]
     Active Substance: HYDROXYCHLOROQUINE SULFATE
  183. HYDROXYCHLOROQUINE SULFATE [Suspect]
     Active Substance: HYDROXYCHLOROQUINE SULFATE
  184. HYDROXYCHLOROQUINE SULFATE [Suspect]
     Active Substance: HYDROXYCHLOROQUINE SULFATE
  185. HYDROXYCHLOROQUINE SULFATE [Suspect]
     Active Substance: HYDROXYCHLOROQUINE SULFATE
  186. NAPROXEN SODIUM [Suspect]
     Active Substance: NAPROXEN SODIUM
     Indication: Rheumatoid arthritis
  187. PREDNISONE [Suspect]
     Active Substance: PREDNISONE
     Indication: Rheumatoid arthritis
  188. PREDNISONE [Suspect]
     Active Substance: PREDNISONE
  189. PREDNISONE [Suspect]
     Active Substance: PREDNISONE
  190. PSEUDOEPHEDRINE HYDROCHLORIDE [Suspect]
     Active Substance: PSEUDOEPHEDRINE HYDROCHLORIDE
     Indication: Rheumatoid arthritis
  191. PSEUDOEPHEDRINE HYDROCHLORIDE [Suspect]
     Active Substance: PSEUDOEPHEDRINE HYDROCHLORIDE
  192. PSEUDOEPHEDRINE HYDROCHLORIDE [Suspect]
     Active Substance: PSEUDOEPHEDRINE HYDROCHLORIDE
  193. PSEUDOEPHEDRINE HYDROCHLORIDE [Suspect]
     Active Substance: PSEUDOEPHEDRINE HYDROCHLORIDE
  194. PSEUDOEPHEDRINE HYDROCHLORIDE [Suspect]
     Active Substance: PSEUDOEPHEDRINE HYDROCHLORIDE
  195. SULFASALAZINE [Suspect]
     Active Substance: SULFASALAZINE
     Indication: Rheumatoid arthritis
  196. SULFASALAZINE [Suspect]
     Active Substance: SULFASALAZINE
     Indication: Psoriatic arthropathy
     Dosage: 1G, 2 EVERY 1 DAYS
  197. SULFASALAZINE [Suspect]
     Active Substance: SULFASALAZINE
     Indication: Product used for unknown indication
  198. SULFASALAZINE [Suspect]
     Active Substance: SULFASALAZINE
     Dosage: 1G, 2 EVERY 1 DAYS
  199. SULFASALAZINE [Suspect]
     Active Substance: SULFASALAZINE
  200. SULFASALAZINE [Suspect]
     Active Substance: SULFASALAZINE
  201. SULFASALAZINE [Suspect]
     Active Substance: SULFASALAZINE
  202. SULFASALAZINE [Suspect]
     Active Substance: SULFASALAZINE
  203. SULFASALAZINE [Suspect]
     Active Substance: SULFASALAZINE
  204. TRIAMCINOLONE ACETONIDE [Suspect]
     Active Substance: TRIAMCINOLONE ACETONIDE
     Indication: Rheumatoid arthritis
  205. ACTEMRA [Suspect]
     Active Substance: TOCILIZUMAB
     Indication: Rheumatoid arthritis
  206. ACTEMRA [Suspect]
     Active Substance: TOCILIZUMAB
     Dosage: SUBCUTANEOUS
  207. ACTEMRA [Suspect]
     Active Substance: TOCILIZUMAB
     Dosage: INTRAVENOUS BOLUS
  208. ACTEMRA [Suspect]
     Active Substance: TOCILIZUMAB
     Dosage: INTRAVENOUS BOLUS
  209. ACTEMRA [Suspect]
     Active Substance: TOCILIZUMAB
     Dosage: INTRAVENOUS BOLUS
  210. ACTEMRA [Suspect]
     Active Substance: TOCILIZUMAB
     Dosage: INTRAVENOUS BOLUS
  211. DICLOFENAC SODIUM [Suspect]
     Active Substance: DICLOFENAC SODIUM
     Indication: Product used for unknown indication
  212. ARAVA [Suspect]
     Active Substance: LEFLUNOMIDE
     Indication: Rheumatoid arthritis
  213. ARAVA [Suspect]
     Active Substance: LEFLUNOMIDE
  214. ARAVA [Suspect]
     Active Substance: LEFLUNOMIDE
  215. ARAVA [Suspect]
     Active Substance: LEFLUNOMIDE
  216. ARAVA [Suspect]
     Active Substance: LEFLUNOMIDE
  217. BETAMETHASONE VALERATE [Suspect]
     Active Substance: BETAMETHASONE VALERATE
     Indication: Product used for unknown indication
  218. BOTULINUM TOXIN TYPE A [Suspect]
     Active Substance: BOTULINUM TOXIN TYPE A
     Indication: Product used for unknown indication
     Dosage: POWDER FOR SOLUTION
  219. BUPRENORPHINE HYDROCHLORIDE [Suspect]
     Active Substance: BUPRENORPHINE HYDROCHLORIDE
     Indication: Product used for unknown indication
  220. CANDESARTAN [Suspect]
     Active Substance: CANDESARTAN
     Indication: Migraine
  221. CERTOLIZUMAB PEGOL [Suspect]
     Active Substance: CERTOLIZUMAB PEGOL
     Indication: Product used for unknown indication
  222. ERENUMAB-AOOE [Suspect]
     Active Substance: ERENUMAB-AOOE
     Indication: Migraine
  223. PHENYLEPHRINE HYDROCHLORIDE [Suspect]
     Active Substance: PHENYLEPHRINE HYDROCHLORIDE
     Indication: Rheumatoid arthritis
  224. ALENDRONATE SODIUM\CHOLECALCIFEROL [Suspect]
     Active Substance: ALENDRONATE SODIUM\CHOLECALCIFEROL
     Indication: Rheumatoid arthritis
  225. AZATHIOPRINE [Suspect]
     Active Substance: AZATHIOPRINE
     Indication: Rheumatoid arthritis
  226. CALCIUM CITRATE [Suspect]
     Active Substance: CALCIUM CITRATE
     Indication: Product used for unknown indication
  227. DOMPERIDONE MALEATE [Suspect]
     Active Substance: DOMPERIDONE MALEATE
     Indication: Product used for unknown indication
  228. HUMIRA [Suspect]
     Active Substance: ADALIMUMAB
     Indication: Rheumatoid arthritis
     Dosage: DOSE FORM: SOLUTION SUBCUTANEOUS
  229. NUCALA [Suspect]
     Active Substance: MEPOLIZUMAB
     Indication: Product used for unknown indication
  230. AIMOVIG [Suspect]
     Active Substance: ERENUMAB-AOOE
     Indication: Product used for unknown indication
  231. ATOMOXETINE [Suspect]
     Active Substance: ATOMOXETINE
     Indication: Migraine
  232. ATOMOXETINE [Suspect]
     Active Substance: ATOMOXETINE
  233. FLUMETHASONE [Suspect]
     Active Substance: FLUMETHASONE
     Indication: Product used for unknown indication
  234. FLUMETHASONE PIVALATE [Suspect]
     Active Substance: FLUMETHASONE PIVALATE
     Indication: Product used for unknown indication
  235. GOLD [Suspect]
     Active Substance: GOLD
     Indication: Product used for unknown indication
  236. HAIR KERATIN AMINO ACIDS GOLD COMPLEX [Suspect]
     Active Substance: HAIR KERATIN AMINO ACIDS GOLD COMPLEX
     Indication: Product used for unknown indication
  237. GOLD SODIUM THIOMALATE [Suspect]
     Active Substance: GOLD SODIUM THIOMALATE
     Indication: Product used for unknown indication
  238. HYDROCORTISONE PROBUTATE [Suspect]
     Active Substance: HYDROCORTISONE PROBUTATE
     Indication: Product used for unknown indication
  239. HYDROXYCHLOROQUINE [Suspect]
     Active Substance: HYDROXYCHLOROQUINE
     Indication: Rheumatoid arthritis
  240. ISOPROPYL ALCOHOL [Suspect]
     Active Substance: ISOPROPYL ALCOHOL
     Indication: Product used for unknown indication
     Dosage: DOSE FORM: LIQUID TOPICAL
  241. KEVZARA [Suspect]
     Active Substance: SARILUMAB
     Indication: Product used for unknown indication
  242. METFORMIN HYDROCHLORIDE [Suspect]
     Active Substance: METFORMIN HYDROCHLORIDE
     Indication: Product used for unknown indication
  243. METHYLPREDNISOLONE [Suspect]
     Active Substance: METHYLPREDNISOLONE
     Indication: Product used for unknown indication
  244. MYOCHRYSINE [Suspect]
     Active Substance: GOLD SODIUM THIOMALATE
     Indication: Product used for unknown indication
  245. MINOCYCLINE [Suspect]
     Active Substance: MINOCYCLINE HYDROCHLORIDE
     Indication: Rheumatoid arthritis
  246. MYRBETRIQ [Suspect]
     Active Substance: MIRABEGRON
     Indication: Product used for unknown indication
  247. NAPROXEN [Suspect]
     Active Substance: NAPROXEN
     Indication: Product used for unknown indication
  248. OXYCODONE TEREPHTHALATE [Suspect]
     Active Substance: OXYCODONE TEREPHTHALATE
     Indication: Product used for unknown indication
  249. PLAQUENIL [Suspect]
     Active Substance: HYDROXYCHLOROQUINE SULFATE
     Indication: Rheumatoid arthritis
  250. RAMIPRIL [Suspect]
     Active Substance: RAMIPRIL
     Indication: Product used for unknown indication
  251. CETIRIZINE HYDROCHLORIDE\PSEUDOEPHEDRINE HYDROCHLORIDE [Suspect]
     Active Substance: CETIRIZINE HYDROCHLORIDE\PSEUDOEPHEDRINE HYDROCHLORIDE
     Indication: Rheumatoid arthritis
  252. REMICADE [Suspect]
     Active Substance: INFLIXIMAB
     Indication: Rheumatoid arthritis
  253. RIBOFLAVIN [Suspect]
     Active Substance: RIBOFLAVIN
     Indication: Product used for unknown indication
  254. SULFASALAZINE [Suspect]
     Active Substance: SULFASALAZINE
     Indication: Rheumatoid arthritis
  255. SIRUKUMAB [Suspect]
     Active Substance: SIRUKUMAB
     Indication: Product used for unknown indication
  256. GOLD SODIUM THIOMALATE [Suspect]
     Active Substance: GOLD SODIUM THIOMALATE
     Indication: Product used for unknown indication
  257. STELARA [Suspect]
     Active Substance: USTEKINUMAB
     Indication: Product used for unknown indication
  258. VITAMIN C [Suspect]
     Active Substance: ASCORBIC ACID
     Indication: Product used for unknown indication
  259. CALCIUM CARBONATE\CHOLECALCIFEROL [Suspect]
     Active Substance: CALCIUM CARBONATE\CHOLECALCIFEROL
     Indication: Product used for unknown indication
  260. TUMS ULTRA [Suspect]
     Active Substance: CALCIUM CARBONATE
     Indication: Product used for unknown indication
  261. COSENTYX [Concomitant]
     Active Substance: SECUKINUMAB
     Indication: Product used for unknown indication
     Dosage: DOSE FORM: INJECTION

REACTIONS (157)
  - Pancreatitis [Fatal]
  - Infusion site reaction [Fatal]
  - Inflammation [Fatal]
  - Incorrect route of product administration [Fatal]
  - Peripheral venous disease [Fatal]
  - Joint range of motion decreased [Fatal]
  - Infection [Fatal]
  - Irritable bowel syndrome [Fatal]
  - Laryngitis [Fatal]
  - Lip dry [Fatal]
  - Joint stiffness [Fatal]
  - Therapy non-responder [Fatal]
  - Lung disorder [Fatal]
  - Pemphigus [Fatal]
  - Swollen joint count [Fatal]
  - Infusion related reaction [Fatal]
  - Inappropriate schedule of product administration [Fatal]
  - Liver injury [Fatal]
  - X-ray abnormal [Fatal]
  - Maternal exposure timing unspecified [Fatal]
  - Exposure during pregnancy [Fatal]
  - Glossodynia [Fatal]
  - Live birth [Fatal]
  - Musculoskeletal stiffness [Fatal]
  - Malaise [Fatal]
  - Hypersensitivity [Fatal]
  - Helicobacter infection [Fatal]
  - Hand deformity [Fatal]
  - Insomnia [Fatal]
  - Intentional product use issue [Fatal]
  - Urticaria [Fatal]
  - General physical health deterioration [Fatal]
  - Hypoaesthesia [Fatal]
  - Injury [Fatal]
  - Maternal exposure during pregnancy [Fatal]
  - Product use in unapproved indication [Fatal]
  - Nausea [Fatal]
  - Off label use [Fatal]
  - Pain [Fatal]
  - Hepatic enzyme increased [Fatal]
  - Joint swelling [Fatal]
  - Oedema [Fatal]
  - Vomiting [Fatal]
  - Osteoarthritis [Fatal]
  - Weight decreased [Fatal]
  - Swelling [Fatal]
  - Weight increased [Fatal]
  - Wound [Fatal]
  - Obesity [Fatal]
  - Road traffic accident [Fatal]
  - Paraesthesia [Fatal]
  - Synovitis [Fatal]
  - Underdose [Fatal]
  - Psoriatic arthropathy [Fatal]
  - Memory impairment [Fatal]
  - Rash [Fatal]
  - Rectal haemorrhage [Fatal]
  - Muscle spasms [Fatal]
  - Mobility decreased [Fatal]
  - Laboratory test abnormal [Fatal]
  - Sciatica [Fatal]
  - Wound infection [Fatal]
  - Pericarditis [Fatal]
  - Systemic lupus erythematosus [Fatal]
  - Rheumatoid arthritis [Fatal]
  - Wheezing [Fatal]
  - White blood cell count increased [Fatal]
  - Muscular weakness [Fatal]
  - Oedema peripheral [Fatal]
  - Pain in extremity [Fatal]
  - Night sweats [Fatal]
  - Musculoskeletal pain [Fatal]
  - Rheumatoid factor positive [Fatal]
  - Liver disorder [Fatal]
  - Porphyria acute [Fatal]
  - Hepatitis [Fatal]
  - Epilepsy [Fatal]
  - Type 2 diabetes mellitus [Fatal]
  - Pneumonia [Fatal]
  - Coeliac disease [Fatal]
  - Lower respiratory tract infection [Fatal]
  - Duodenal ulcer perforation [Fatal]
  - Breast cancer stage III [Fatal]
  - Rheumatic fever [Fatal]
  - Drug-induced liver injury [Fatal]
  - Stomatitis [Fatal]
  - Bursitis [Fatal]
  - Injection site reaction [Fatal]
  - Facet joint syndrome [Fatal]
  - Condition aggravated [Fatal]
  - Adverse reaction [Fatal]
  - Fibromyalgia [Fatal]
  - Dizziness [Fatal]
  - Impaired healing [Fatal]
  - C-reactive protein abnormal [Fatal]
  - Ill-defined disorder [Fatal]
  - Asthenia [Fatal]
  - Neck pain [Fatal]
  - Gastrointestinal disorder [Fatal]
  - Fatigue [Fatal]
  - Grip strength decreased [Fatal]
  - Anti-cyclic citrullinated peptide antibody positive [Fatal]
  - Onychomycosis [Fatal]
  - Abdominal distension [Fatal]
  - Blister [Fatal]
  - Nasopharyngitis [Fatal]
  - Nail disorder [Fatal]
  - Peripheral swelling [Fatal]
  - Abdominal pain upper [Fatal]
  - Abdominal discomfort [Fatal]
  - Liver function test increased [Fatal]
  - C-reactive protein increased [Fatal]
  - Diarrhoea [Fatal]
  - Gait inability [Fatal]
  - Dry mouth [Fatal]
  - Muscle injury [Fatal]
  - Arthropathy [Fatal]
  - Dyspnoea [Fatal]
  - Drug ineffective [Fatal]
  - Contraindicated product administered [Fatal]
  - Drug intolerance [Fatal]
  - Overdose [Fatal]
  - Gastrooesophageal reflux disease [Fatal]
  - Blood cholesterol increased [Fatal]
  - Alopecia [Fatal]
  - Migraine [Fatal]
  - Onychomadesis [Fatal]
  - Hypercholesterolaemia [Fatal]
  - Hypertension [Fatal]
  - Dyspepsia [Fatal]
  - Fall [Fatal]
  - Folliculitis [Fatal]
  - Blepharospasm [Fatal]
  - Confusional state [Fatal]
  - Arthralgia [Fatal]
  - Headache [Fatal]
  - Finger deformity [Fatal]
  - Back injury [Fatal]
  - Drug hypersensitivity [Fatal]
  - Depression [Fatal]
  - Incorrect product administration duration [Fatal]
  - Product label confusion [Fatal]
  - Product quality issue [Fatal]
  - Sleep disorder [Fatal]
  - Taste disorder [Fatal]
  - Therapeutic product effect decreased [Fatal]
  - Decreased appetite [Fatal]
  - Intentional product misuse [Fatal]
  - Treatment failure [Fatal]
  - Contusion [Fatal]
  - Gait disturbance [Fatal]
  - Prescribed overdose [Fatal]
  - Prescribed underdose [Fatal]
  - Product use issue [Fatal]
  - Pulmonary fibrosis [Fatal]
  - Therapeutic response decreased [Fatal]
  - Ulcer haemorrhage [Fatal]
